FAERS Safety Report 16202226 (Version 3)
Quarter: 2019Q3

REPORT INFORMATION
  Report Type: Spontaneous
  Country: DE (occurrence: DE)
  Receive Date: 20190416
  Receipt Date: 20190802
  Transmission Date: 20191004
  Serious: Yes (Death, Other)
  Sender: FDA-Public Use
  Company Number: DE-ROCHE-2304791

PATIENT
  Sex: Female

DRUGS (1)
  1. AVASTIN [Suspect]
     Active Substance: BEVACIZUMAB
     Indication: OVARIAN CANCER METASTATIC
     Route: 065

REACTIONS (6)
  - Anti-VGCC antibody positive [Unknown]
  - Starvation [Fatal]
  - Nervous system disorder [Unknown]
  - Dehydration [Fatal]
  - Encephalitis [Unknown]
  - Intestinal obstruction [Not Recovered/Not Resolved]
